FAERS Safety Report 5711996-X (Version None)
Quarter: 2008Q2

REPORT INFORMATION
  Report Type: 
  Country: None (occurrence: None)
  Receive Date: 20080416
  Receipt Date: 20080401
  Transmission Date: 20081010
  Serious: Yes (Other)
  Sender: FDA-Public Use
  Company Number: 2005S1010657

PATIENT
  Age: 8 Year
  Sex: Male

DRUGS (4)
  1. MERCAPTAMINE BITARTRATE (MERCAPTAMINE BITARTRATE) (150 MG) [Suspect]
     Indication: CYSTINOSIS
     Dosage: SEE IMAGE
     Route: 048
     Dates: start: 19980512
  2. POTASSIUM BICARBONATE [Concomitant]
  3. SODIUM BICARBONATE [Concomitant]
  4. ALPHACALCIDOL [Concomitant]

REACTIONS (2)
  - CONTUSION [None]
  - SKIN TIGHTNESS [None]
